FAERS Safety Report 9530125 (Version 1)
Quarter: 2013Q3

REPORT INFORMATION
  Report Type: Report from Study
  Country: CO (occurrence: CO)
  Receive Date: 20130917
  Receipt Date: 20130917
  Transmission Date: 20140515
  Serious: Yes (Hospitalization)
  Sender: FDA-Public Use
  Company Number: CO-ROCHE-1276277

PATIENT
  Age: 74 Year
  Sex: Male

DRUGS (1)
  1. PEGASYS [Suspect]
     Indication: HEPATITIS C
     Dosage: LAST DOSES RECEIVED ON 10/SEP/2013
     Route: 058
     Dates: start: 20121101

REACTIONS (1)
  - Pancytopenia [Recovered/Resolved]
